FAERS Safety Report 5931845-4 (Version None)
Quarter: 2008Q4

REPORT INFORMATION
  Report Type: 
  Country: None (occurrence: None)
  Receive Date: 20081027
  Receipt Date: 20081016
  Transmission Date: 20090506
  Serious: Yes (Other)
  Sender: FDA-Public Use
  Company Number: US-PFIZER INC-2008087523

PATIENT
  Sex: Female
  Weight: 70.3 kg

DRUGS (5)
  1. AROMASIN [Suspect]
     Indication: BREAST CANCER
     Route: 048
     Dates: start: 20080901
  2. ZETIA [Concomitant]
  3. SERTRALINE [Concomitant]
  4. ALPRAZOLAM [Concomitant]
  5. ACETYLSALICYLIC ACID SRT [Concomitant]

REACTIONS (5)
  - ARTHRALGIA [None]
  - JOINT SWELLING [None]
  - NEURALGIA [None]
  - OEDEMA PERIPHERAL [None]
  - PAIN IN EXTREMITY [None]
